FAERS Safety Report 9016381 (Version 2)
Quarter: 2013Q1

REPORT INFORMATION
  Report Type: Spontaneous
  Country: US (occurrence: US)
  Receive Date: 20130116
  Receipt Date: 20130201
  Transmission Date: 20140127
  Serious: Yes (Death)
  Sender: FDA-Public Use
  Company Number: US-BAYER-2013-004938

PATIENT
  Age: 43 Year
  Sex: Female

DRUGS (3)
  1. BETASERON [Suspect]
     Indication: MULTIPLE SCLEROSIS
     Dosage: 0.25 MG, QOD
     Route: 058
     Dates: start: 20121019, end: 20121210
  2. DILANTIN [Concomitant]
  3. MORPHINE [Concomitant]

REACTIONS (2)
  - Multiple sclerosis [Fatal]
  - Aphagia [Fatal]
